FAERS Safety Report 12994797 (Version 17)
Quarter: 2017Q3

REPORT INFORMATION
  Report Type: Report from Study
  Country: CA (occurrence: CA)
  Receive Date: 20161202
  Receipt Date: 20170725
  Transmission Date: 20171127
  Serious: Yes (Hospitalization, Other)
  Sender: FDA-Public Use
  Company Number: CA-SA-2016SA199266

PATIENT
  Age: 71 Year
  Sex: Male
  Weight: 112.2 kg

DRUGS (28)
  1. JEVTANA [Suspect]
     Active Substance: CABAZITAXEL
     Indication: PROSTATE CANCER
     Route: 042
     Dates: start: 20161125, end: 20161125
  2. JEVTANA [Suspect]
     Active Substance: CABAZITAXEL
     Indication: PROSTATE CANCER
     Route: 042
     Dates: start: 20170412, end: 20170412
  3. DEXAMETHASONE. [Suspect]
     Active Substance: DEXAMETHASONE
     Indication: PREMEDICATION
     Route: 042
     Dates: start: 20161028, end: 20161028
  4. FAMOTIDINE. [Suspect]
     Active Substance: FAMOTIDINE
     Indication: PREMEDICATION
     Route: 042
     Dates: start: 20161028, end: 20161028
  5. METONIA [Concomitant]
     Active Substance: METOCLOPRAMIDE
     Indication: PREMEDICATION
     Route: 048
     Dates: start: 20161028
  6. ATORVASTATIN [Concomitant]
     Active Substance: ATORVASTATIN
     Indication: LIPIDS INCREASED
     Route: 048
  7. MAGNESIUM [Concomitant]
     Active Substance: MAGNESIUM
     Indication: ROUTINE HEALTH MAINTENANCE
     Dosage: DOSE: 500 MG/5ML
  8. METONIA [Concomitant]
     Active Substance: METOCLOPRAMIDE
     Indication: PREMEDICATION
     Route: 048
     Dates: start: 20161125, end: 20161125
  9. JEVTANA [Suspect]
     Active Substance: CABAZITAXEL
     Indication: PROSTATE CANCER
     Route: 042
     Dates: start: 20161216, end: 20161216
  10. JEVTANA [Suspect]
     Active Substance: CABAZITAXEL
     Indication: PROSTATE CANCER
     Route: 042
     Dates: start: 20170217, end: 20170217
  11. DIPHENHYDRAMINE. [Suspect]
     Active Substance: DIPHENHYDRAMINE
     Indication: PREMEDICATION
     Route: 042
     Dates: start: 20161028, end: 20161028
  12. PREDNISONE. [Concomitant]
     Active Substance: PREDNISONE
     Indication: ROUTINE HEALTH MAINTENANCE
     Route: 048
  13. JEVTANA [Suspect]
     Active Substance: CABAZITAXEL
     Indication: PROSTATE CANCER
     Route: 042
     Dates: start: 20170106, end: 20170106
  14. JEVTANA [Suspect]
     Active Substance: CABAZITAXEL
     Indication: PROSTATE CANCER
     Route: 042
     Dates: start: 20161216, end: 20161216
  15. DEXAMETHASONE. [Suspect]
     Active Substance: DEXAMETHASONE
     Indication: PREMEDICATION
     Route: 042
     Dates: start: 20161028, end: 20161028
  16. FAMOTIDINE. [Suspect]
     Active Substance: FAMOTIDINE
     Indication: PREMEDICATION
     Route: 042
     Dates: start: 20161028, end: 20161028
  17. AMOXICLAV [Suspect]
     Active Substance: AMOXICILLIN\CLAVULANIC ACID
     Indication: PYREXIA
     Route: 048
  18. JAMP-K [Concomitant]
     Indication: ROUTINE HEALTH MAINTENANCE
     Route: 048
  19. JEVTANA [Suspect]
     Active Substance: CABAZITAXEL
     Indication: PROSTATE CANCER
     Route: 042
     Dates: start: 20161028, end: 20161028
  20. JEVTANA [Suspect]
     Active Substance: CABAZITAXEL
     Indication: PROSTATE CANCER
     Route: 042
     Dates: start: 20161125, end: 20161125
  21. ELIGARD [Concomitant]
     Active Substance: LEUPROLIDE ACETATE
     Indication: PROSTATE CANCER
     Dosage: EVERY SIX MONTHS
     Route: 058
  22. JEVTANA [Suspect]
     Active Substance: CABAZITAXEL
     Indication: PROSTATE CANCER
     Route: 042
     Dates: start: 20170127, end: 20170127
  23. JEVTANA [Suspect]
     Active Substance: CABAZITAXEL
     Indication: PROSTATE CANCER
     Route: 042
     Dates: start: 20170503, end: 20170503
  24. DIPHENHYDRAMINE. [Suspect]
     Active Substance: DIPHENHYDRAMINE
     Indication: PREMEDICATION
     Route: 042
     Dates: start: 20161028, end: 20161028
  25. RANITIDINE. [Concomitant]
     Active Substance: RANITIDINE
     Indication: ROUTINE HEALTH MAINTENANCE
     Dosage: QD PRN
     Route: 048
  26. DEXAMETHASONE. [Concomitant]
     Active Substance: DEXAMETHASONE
     Route: 048
  27. JEVTANA [Suspect]
     Active Substance: CABAZITAXEL
     Indication: PROSTATE CANCER
     Route: 042
     Dates: start: 20170322, end: 20170322
  28. MCAL D400 [Concomitant]
     Indication: ROUTINE HEALTH MAINTENANCE
     Dosage: DOSE: 500 MG-400 IU
     Route: 048

REACTIONS (29)
  - Infusion site oedema [Recovered/Resolved]
  - Productive cough [Recovered/Resolved]
  - Cough [Recovered/Resolved]
  - Drug intolerance [Unknown]
  - Pain [Recovered/Resolved]
  - Nausea [Recovered/Resolved]
  - Vomiting [Recovered/Resolved]
  - Blood pressure systolic increased [Recovered/Resolved]
  - Flushing [Recovered/Resolved]
  - White blood cell count decreased [Recovered/Resolved]
  - Fatigue [Recovered/Resolved]
  - Skin reaction [Recovered/Resolved]
  - Heart rate increased [Not Recovered/Not Resolved]
  - Accidental overdose [Recovered/Resolved]
  - Anaemia [Unknown]
  - Constipation [Recovering/Resolving]
  - Weight decreased [Recovering/Resolving]
  - Dizziness [Not Recovered/Not Resolved]
  - Product preparation error [Recovered/Resolved]
  - Rhinorrhoea [Recovered/Resolved]
  - Decreased appetite [Recovering/Resolving]
  - Back pain [Not Recovered/Not Resolved]
  - Feeling hot [Recovered/Resolved]
  - Nasopharyngitis [Recovered/Resolved]
  - Sneezing [Recovered/Resolved]
  - Hypotension [Not Recovered/Not Resolved]
  - Erythema [Recovered/Resolved]
  - Infusion site erythema [Recovered/Resolved]
  - Infusion site bruising [Recovering/Resolving]

NARRATIVE: CASE EVENT DATE: 2016
